FAERS Safety Report 23100080 (Version 1)
Quarter: 2023Q4

REPORT INFORMATION
  Report Type: Spontaneous
  Country: US (occurrence: None)
  Receive Date: 20231023
  Receipt Date: 20231023
  Transmission Date: 20240110
  Serious: Yes (Disabling)
  Sender: FDA-Public Use
  Company Number: None

PATIENT
  Age: 39 Year
  Sex: Female
  Weight: 89.1 kg

DRUGS (7)
  1. QULIPTA [Suspect]
     Active Substance: ATOGEPANT
     Indication: Migraine
     Dosage: OTHER QUANTITY : 30 CAPSULE(S);?
     Route: 048
     Dates: end: 20230824
  2. QULIPTA [Suspect]
     Active Substance: ATOGEPANT
     Indication: Status migrainosus
  3. TOPIRAMATE [Concomitant]
     Active Substance: TOPIRAMATE
  4. MEMANTINE [Concomitant]
     Active Substance: MEMANTINE
  5. MAGNESIUM [Concomitant]
     Active Substance: MAGNESIUM
  6. IRON [Concomitant]
     Active Substance: IRON
  7. VITAMIN D [Concomitant]
     Active Substance: VITAMIN D NOS

REACTIONS (8)
  - Vomiting [None]
  - Nausea [None]
  - Diarrhoea [None]
  - Decreased appetite [None]
  - Fatigue [None]
  - Malaise [None]
  - Impaired work ability [None]
  - Therapy cessation [None]

NARRATIVE: CASE EVENT DATE: 20230828
